FAERS Safety Report 16198816 (Version 2)
Quarter: 2019Q2

REPORT INFORMATION
  Report Type: Report from Study
  Country: JP (occurrence: JP)
  Receive Date: 20190415
  Receipt Date: 20190625
  Transmission Date: 20190711
  Serious: Yes (Death, Other)
  Sender: FDA-Public Use
  Company Number: JP-TAKEDA-2019TUS022801

PATIENT
  Age: 73 Year
  Sex: Female
  Weight: 60 kg

DRUGS (21)
  1. PONATINIB [Suspect]
     Active Substance: PONATINIB
     Dosage: 15 MILLIGRAM, QD
     Route: 048
     Dates: start: 20180307, end: 20180325
  2. PONATINIB [Suspect]
     Active Substance: PONATINIB
     Dosage: 15 MILLIGRAM, QD
     Route: 048
     Dates: start: 20180407, end: 20180421
  3. GRAN [Concomitant]
     Active Substance: FILGRASTIM
     Dosage: UNK
     Route: 065
     Dates: start: 20180502, end: 20180502
  4. GRAN [Concomitant]
     Active Substance: FILGRASTIM
     Dosage: UNK
     Route: 065
     Dates: start: 20180513, end: 20180513
  5. GRAN [Concomitant]
     Active Substance: FILGRASTIM
     Dosage: UNK
     Route: 065
     Dates: start: 20180608, end: 20180608
  6. HYPER CVAD [Concomitant]
     Active Substance: CYCLOPHOSPHAMIDE\CYTARABINE\DEXAMETHASONE\DOXORUBICIN\METHOTREXATE\VINCRISTINE
     Indication: PRODUCT USED FOR UNKNOWN INDICATION
     Dosage: UNK
     Route: 065
     Dates: start: 20180619, end: 20180628
  7. PONATINIB [Suspect]
     Active Substance: PONATINIB
     Dosage: 45 MILLIGRAM, QD
     Route: 048
     Dates: start: 20180401, end: 20180406
  8. SUMIFERON-DS [Concomitant]
     Dosage: UNK
     Route: 065
     Dates: start: 20180515, end: 20180518
  9. GRAN [Concomitant]
     Active Substance: FILGRASTIM
     Dosage: UNK
     Route: 065
     Dates: start: 20180504, end: 20180506
  10. GRAN [Concomitant]
     Active Substance: FILGRASTIM
     Dosage: UNK
     Route: 065
     Dates: start: 20180518, end: 20180518
  11. GRAN [Concomitant]
     Active Substance: FILGRASTIM
     Dosage: UNK
     Route: 065
     Dates: start: 20180606, end: 20180606
  12. SUMIFERON-DS [Concomitant]
     Dosage: UNK
     Route: 065
     Dates: start: 20180521, end: 20180525
  13. PONATINIB [Suspect]
     Active Substance: PONATINIB
     Dosage: 30 MILLIGRAM, QD
     Route: 048
     Dates: start: 20180326, end: 20180331
  14. GRAN [Concomitant]
     Active Substance: FILGRASTIM
     Dosage: UNK
     Route: 065
     Dates: start: 20180626, end: 20180704
  15. PONATINIB [Suspect]
     Active Substance: PONATINIB
     Indication: CHRONIC MYELOID LEUKAEMIA TRANSFORMATION
     Dosage: 30 MILLIGRAM, QD
     Route: 048
     Dates: start: 20180422, end: 20180820
  16. GRAN [Concomitant]
     Active Substance: FILGRASTIM
     Dosage: UNK
     Route: 065
     Dates: start: 20180522, end: 20180523
  17. SUMIFERON-DS [Concomitant]
     Indication: PRODUCT USED FOR UNKNOWN INDICATION
     Dosage: UNK
     Route: 065
     Dates: start: 20180404, end: 20180406
  18. SUMIFERON-DS [Concomitant]
     Dosage: UNK
     Route: 065
     Dates: start: 20180528, end: 20180601
  19. GRAN [Concomitant]
     Active Substance: FILGRASTIM
     Dosage: UNK
     Route: 065
     Dates: start: 20180509, end: 20180509
  20. GRAN [Concomitant]
     Active Substance: FILGRASTIM
     Indication: PROPHYLAXIS
     Dosage: UNK
     Route: 065
     Dates: start: 20180427, end: 20180430
  21. SUMIFERON-DS [Concomitant]
     Dosage: UNK
     Route: 065
     Dates: start: 20180604, end: 20180608

REACTIONS (2)
  - White blood cell count decreased [Fatal]
  - Chronic myeloid leukaemia transformation [Fatal]

NARRATIVE: CASE EVENT DATE: 20180818
